FAERS Safety Report 22349785 (Version 1)
Quarter: 2023Q2

REPORT INFORMATION
  Report Type: Other
  Country: US (occurrence: None)
  Receive Date: 20230522
  Receipt Date: 20230522
  Transmission Date: 20230721
  Serious: Yes (Hospitalization)
  Sender: FDA-Public Use
  Company Number: US-ROCHE-3349604

PATIENT
  Age: 54 Year
  Sex: Female

DRUGS (12)
  1. OCREVUS [Suspect]
     Active Substance: OCRELIZUMAB
     Indication: Relapsing multiple sclerosis
     Dosage: ONGOING: YES; DATE OF TREATMENT: 24/SEP/2021, 08/OCT/2021, 05/MAY/2022, 17/NOV/2022
     Route: 042
     Dates: start: 20210924
  2. OCREVUS [Suspect]
     Active Substance: OCRELIZUMAB
     Route: 042
  3. BACLOFEN [Concomitant]
     Active Substance: BACLOFEN
  4. ESCITALOPRAM [Concomitant]
     Active Substance: ESCITALOPRAM OXALATE
  5. ASPIRIN [Concomitant]
     Active Substance: ASPIRIN
  6. CHOLECALCIFEROL [Concomitant]
     Active Substance: CHOLECALCIFEROL
  7. CLONIDINE [Concomitant]
     Active Substance: CLONIDINE
  8. CYCLOBENZAPRINE [Concomitant]
     Active Substance: CYCLOBENZAPRINE
  9. ESCITALOPRAM [Concomitant]
     Active Substance: ESCITALOPRAM OXALATE
  10. FLUCONAZOLE [Concomitant]
     Active Substance: FLUCONAZOLE
  11. FUROSEMIDE [Concomitant]
     Active Substance: FUROSEMIDE
  12. GABAPENTIN [Concomitant]
     Active Substance: GABAPENTIN

REACTIONS (1)
  - Pancreatitis [Not Recovered/Not Resolved]
